FAERS Safety Report 5633554-8 (Version None)
Quarter: 2008Q1

REPORT INFORMATION
  Report Type: 
  Country: None (occurrence: None)
  Receive Date: 20080219
  Receipt Date: 20080209
  Transmission Date: 20080703
  Serious: Yes (Hospitalization, Other)
  Sender: FDA-Public Use
  Company Number: 2008SP003005

PATIENT
  Age: 52 Year
  Sex: Female

DRUGS (2)
  1. PEG-INTRON [Suspect]
     Indication: HEPATITIS C
     Dosage: SC
     Route: 058
     Dates: start: 20071009
  2. RIBAVIRIN [Suspect]
     Indication: HEPATITIS C
     Dosage: PO
     Route: 048
     Dates: start: 20071009

REACTIONS (12)
  - AGGRESSION [None]
  - ANGER [None]
  - ASTHENIA [None]
  - DEHYDRATION [None]
  - DEPRESSION [None]
  - FATIGUE [None]
  - HAEMOGLOBIN DECREASED [None]
  - INFLUENZA [None]
  - NAUSEA [None]
  - ORAL INTAKE REDUCED [None]
  - VOMITING [None]
  - WHITE BLOOD CELL COUNT INCREASED [None]
